FAERS Safety Report 8586604-3 (Version None)
Quarter: 2012Q3

REPORT INFORMATION
  Report Type: 
  Country: None (occurrence: None)
  Receive Date: 20120810
  Receipt Date: 20120803
  Transmission Date: 20120928
  Serious: Yes (Hospitalization, Other)
  Sender: FDA-Public Use
  Company Number: JP-VERTEX PHARMACEUTICALS INC.-AE-2012-003278

PATIENT
  Age: 59 Year
  Sex: Female

DRUGS (22)
  1. TELAVIC [Suspect]
     Route: 048
     Dates: start: 20120514
  2. REBETOL [Concomitant]
     Route: 048
     Dates: start: 20120228, end: 20120228
  3. REBETOL [Concomitant]
     Route: 048
     Dates: start: 20120229, end: 20120307
  4. REBAMIPIDE [Concomitant]
     Route: 048
     Dates: start: 20111128
  5. LOXONIN [Concomitant]
     Route: 048
     Dates: start: 20120225
  6. REBETOL [Concomitant]
     Route: 048
     Dates: start: 20120405, end: 20120412
  7. PEGINTERFERON ALFA-2B [Concomitant]
     Route: 051
     Dates: start: 20120329, end: 20120419
  8. PEGINTERFERON ALFA-2B [Concomitant]
     Route: 051
     Dates: start: 20120510, end: 20120519
  9. REBETOL [Concomitant]
     Route: 048
     Dates: start: 20120514, end: 20120520
  10. ALLEGRA [Concomitant]
     Route: 048
     Dates: start: 20120405
  11. MOTILIUM [Concomitant]
     Route: 048
     Dates: start: 20120412, end: 20120416
  12. PEGINTERFERON ALFA-2B [Concomitant]
     Route: 051
     Dates: start: 20120301, end: 20120301
  13. TELAVIC [Suspect]
     Route: 048
     Dates: start: 20120302, end: 20120307
  14. PEGINTERFERON ALFA-2B [Concomitant]
     Indication: HEPATITIS C
     Route: 051
     Dates: start: 20120221, end: 20120221
  15. REBETOL [Concomitant]
     Indication: HEPATITIS C
     Route: 048
     Dates: start: 20120221, end: 20120225
  16. PROMAC [Concomitant]
     Route: 048
     Dates: start: 20060724
  17. TELAVIC [Suspect]
     Indication: HEPATITIS C
     Route: 048
     Dates: start: 20120221, end: 20120225
  18. TELAVIC [Suspect]
     Route: 048
     Dates: start: 20120308, end: 20120412
  19. PEGINTERFERON ALFA-2B [Concomitant]
     Route: 051
     Dates: start: 20120517
  20. REBETOL [Concomitant]
     Route: 048
     Dates: start: 20120521
  21. PEGINTERFERON ALFA-2B [Concomitant]
     Route: 051
     Dates: start: 20120308, end: 20120322
  22. REBETOL [Concomitant]
     Route: 048
     Dates: start: 20120308, end: 20120404

REACTIONS (6)
  - OEDEMA PERIPHERAL [None]
  - ANAEMIA [None]
  - HYPOALBUMINAEMIA [None]
  - SOMNOLENCE [None]
  - DELIRIUM [None]
  - DIARRHOEA [None]
